FAERS Safety Report 9161191 (Version 2)
Quarter: 2013Q1

REPORT INFORMATION
  Report Type: Report from Study
  Country: US (occurrence: US)
  Receive Date: 20130313
  Receipt Date: 20130325
  Transmission Date: 20140127
  Serious: Yes (Hospitalization)
  Sender: FDA-Public Use
  Company Number: US-GLAXOSMITHKLINE-A1006942A

PATIENT
  Age: 45 Year
  Sex: Female
  Weight: 63 kg

DRUGS (4)
  1. LAPATINIB [Suspect]
     Indication: NEOPLASM
     Dosage: 1250MG PER DAY
     Route: 048
     Dates: start: 20121105
  2. XELODA [Suspect]
     Indication: NEOPLASM
     Dosage: 3440MG PER DAY
     Route: 048
     Dates: start: 20121114, end: 20121217
  3. PHENERGAN [Concomitant]
     Indication: NAUSEA
     Route: 042
     Dates: start: 20121228, end: 20121228
  4. POTASSIUM CHLORIDE [Concomitant]
     Indication: HYPONATRAEMIA
     Dosage: 25MEQ FOUR TIMES PER DAY
     Dates: start: 20121228, end: 20130102

REACTIONS (2)
  - Vomiting [Recovered/Resolved]
  - Nausea [Recovered/Resolved]
